FAERS Safety Report 8180015-0 (Version None)
Quarter: 2012Q1

REPORT INFORMATION
  Report Type: 
  Country: None (occurrence: None)
  Receive Date: 20120302
  Receipt Date: 20120217
  Transmission Date: 20120608
  Serious: Yes (Congenital Anomaly)
  Sender: FDA-Public Use
  Company Number: US-MYLANLABS-2012S1003904

PATIENT

DRUGS (3)
  1. PREGABALIN [Suspect]
     Dosage: 200MG AT 15 WEEKS
     Route: 064
  2. LAMOTRIGINE [Suspect]
     Dosage: 150MG
     Route: 064
  3. PREGABALIN [Suspect]
     Dosage: 300MG AT LAST MENSTRUAL PERIOD
     Route: 064

REACTIONS (2)
  - MATERNAL EXPOSURE DURING PREGNANCY [None]
  - MICROTIA [None]
